FAERS Safety Report 4774533-2 (Version None)
Quarter: 2005Q3

REPORT INFORMATION
  Report Type: 
  Country: None (occurrence: None)
  Receive Date: 20050919
  Receipt Date: 20050919
  Transmission Date: 20060218
  Serious: No
  Sender: FDA-Public Use
  Company Number: None

PATIENT
  Age: 67 Year
  Sex: Female
  Weight: 123 kg

DRUGS (1)
  1. VANCOMYCIN [Suspect]
     Indication: NECROTISING FASCIITIS
     Dosage: 1G Q12H IV
     Route: 042
     Dates: start: 20050725, end: 20050801

REACTIONS (1)
  - RENAL FAILURE ACUTE [None]
